FAERS Safety Report 5491905-1 (Version None)
Quarter: 2007Q4

REPORT INFORMATION
  Report Type: 
  Country: None (occurrence: None)
  Receive Date: 20071019
  Receipt Date: 20071019
  Transmission Date: 20080405
  Serious: Yes (Hospitalization, Disabling)
  Sender: FDA-Public Use
  Company Number: None

PATIENT
  Sex: Male
  Weight: 92.9874 kg

DRUGS (1)
  1. TERBINAFINE 250MG NOVARTIS [Suspect]
     Indication: ONYCHOMYCOSIS
     Dosage: ONE TABLET DAILY PO
     Route: 048
     Dates: start: 20071001, end: 20071005

REACTIONS (7)
  - DYSPNOEA [None]
  - EYE SWELLING [None]
  - FACE OEDEMA [None]
  - IMPAIRED WORK ABILITY [None]
  - LIP SWELLING [None]
  - RASH [None]
  - SWOLLEN TONGUE [None]
